FAERS Safety Report 5836053-3 (Version None)
Quarter: 2008Q3

REPORT INFORMATION
  Report Type: 
  Country: None (occurrence: None)
  Receive Date: 20080805
  Receipt Date: 20080725
  Transmission Date: 20090109
  Serious: Yes (Hospitalization)
  Sender: FDA-Public Use
  Company Number: GB-DEXPHARM-20080846

PATIENT
  Age: 81 Year
  Sex: Male

DRUGS (9)
  1. OMEPRAZOLE [Suspect]
     Dosage: ^1/1 DAYS^ { 40 MG MILLGRAM(S) } ORAL
     Route: 048
  2. AMLODIPINE [Concomitant]
  3. ASPIRIN [Concomitant]
  4. ATENOLOL [Concomitant]
  5. ATORVASTATIN [Concomitant]
  6. ISOSORBIDE MONONITRATE [Concomitant]
  7. LISINOPRIL [Concomitant]
  8. OLMESARTAN MEDOXOMIL [Concomitant]
  9. QUININE [Concomitant]

REACTIONS (10)
  - ATRIAL FLUTTER [None]
  - BLOOD PHOSPHORUS DECREASED [None]
  - BRADYCARDIA [None]
  - HEART RATE ABNORMAL [None]
  - HEART RATE IRREGULAR [None]
  - HYPOCALCAEMIA [None]
  - HYPOKALAEMIA [None]
  - HYPOMAGNESAEMIA [None]
  - HYPOTENSION [None]
  - URINARY TRACT INFECTION [None]
